FAERS Safety Report 13098520 (Version 1)
Quarter: 2017Q1

REPORT INFORMATION
  Report Type: Report from Study
  Country: US (occurrence: US)
  Receive Date: 20170109
  Receipt Date: 20170109
  Transmission Date: 20170428
  Serious: Yes (Other)
  Sender: FDA-Public Use
  Company Number: US-JNJFOC-20170105436

PATIENT
  Sex: Male

DRUGS (1)
  1. IMBRUVICA [Suspect]
     Active Substance: IBRUTINIB
     Indication: MANTLE CELL LYMPHOMA
     Route: 048
     Dates: start: 20131001

REACTIONS (3)
  - Diarrhoea [Not Recovered/Not Resolved]
  - Kidney enlargement [Not Recovered/Not Resolved]
  - Urinary bladder haemorrhage [Not Recovered/Not Resolved]
